FAERS Safety Report 8021914-X (Version None)
Quarter: 2011Q4

REPORT INFORMATION
  Report Type: 
  Country: None (occurrence: None)
  Receive Date: 20111230
  Receipt Date: 20111219
  Transmission Date: 20120403
  Serious: Yes (Other)
  Sender: FDA-Public Use
  Company Number: 2011P1014668

PATIENT

DRUGS (2)
  1. FENTANYL CITRATE [Suspect]
     Indication: PAIN
     Dosage: 650 UG;X2;
     Dates: start: 20111201, end: 20111201
  2. FENTANYL CITRATE [Suspect]
     Indication: SURGERY
     Dosage: 650 UG;X2;
     Dates: start: 20111201, end: 20111201

REACTIONS (2)
  - CRYING [None]
  - PAIN [None]
